FAERS Safety Report 25307355 (Version 1)
Quarter: 2025Q2

REPORT INFORMATION
  Report Type: Spontaneous
  Country: US (occurrence: US)
  Receive Date: 20250513
  Receipt Date: 20250513
  Transmission Date: 20250716
  Serious: No
  Sender: BRISTOL-MYERS SQUIBB COMPANY
  Company Number: US-BRISTOL-MYERS SQUIBB COMPANY-2025-069373

PATIENT
  Age: 65 Year

DRUGS (2)
  1. YERVOY [Suspect]
     Active Substance: IPILIMUMAB
     Indication: Product used for unknown indication
     Route: 042
  2. YERVOY [Suspect]
     Active Substance: IPILIMUMAB
     Route: 042

REACTIONS (11)
  - Eczema [Unknown]
  - Lipoma [Unknown]
  - Aortic dilatation [Unknown]
  - Renal disorder [Unknown]
  - Vitamin B12 decreased [Unknown]
  - Auditory disorder [Unknown]
  - Serum ferritin increased [Unknown]
  - Anaemia [Unknown]
  - Vitamin D deficiency [Unknown]
  - Fatigue [Unknown]
  - Oedema peripheral [Unknown]

NARRATIVE: CASE EVENT DATE: 20250507
